FAERS Safety Report 10681994 (Version 2)
Quarter: 2015Q1

REPORT INFORMATION
  Report Type: Report from Study
  Country: ES (occurrence: ES)
  Receive Date: 20141230
  Receipt Date: 20150130
  Transmission Date: 20150720
  Serious: Yes (Life-Threatening, Hospitalization, Other)
  Sender: FDA-Public Use
  Company Number: PHHY2014ES169603

PATIENT
  Age: 25 Year
  Sex: Female

DRUGS (1)
  1. GILENYA [Suspect]
     Active Substance: FINGOLIMOD HYDROCHLORIDE
     Indication: MULTIPLE SCLEROSIS
     Dosage: 0.5 MG, UNK
     Route: 048
     Dates: start: 201310

REACTIONS (6)
  - Insomnia [Recovering/Resolving]
  - Coordination abnormal [Recovering/Resolving]
  - Suicide attempt [Recovering/Resolving]
  - Multiple sclerosis relapse [Recovering/Resolving]
  - Hyperaesthesia [Recovering/Resolving]
  - Asthenia [Recovering/Resolving]

NARRATIVE: CASE EVENT DATE: 201412
